FAERS Safety Report 7802869-7 (Version None)
Quarter: 2011Q4

REPORT INFORMATION
  Report Type: 
  Country: None (occurrence: None)
  Receive Date: 20111007
  Receipt Date: 20101111
  Transmission Date: 20120403
  Serious: No
  Sender: FDA-Public Use
  Company Number: US-MUTUAL PHARMACEUTICAL COMPANY, INC.-2010P1002122

PATIENT
  Sex: Female
  Weight: 111.13 kg

DRUGS (11)
  1. BENICAR [Concomitant]
  2. HYDROCODONE BITARTRATE [Concomitant]
  3. FUROSEMIDE 80MG [Concomitant]
  4. NIFEDIPINE [Concomitant]
  5. ISOSORBIDE MONONITRATE [Concomitant]
  6. TIZANIDINE HCL [Concomitant]
  7. MULTI-VITAMIN [Concomitant]
  8. QUALAQUIN [Suspect]
     Indication: MUSCLE SPASMS
     Route: 048
     Dates: start: 20090101
  9. CARVEDILOL [Concomitant]
  10. SIMVASTATIN [Concomitant]
  11. FERGON IRON [Concomitant]

REACTIONS (3)
  - TINNITUS [None]
  - INCREASED TENDENCY TO BRUISE [None]
  - OFF LABEL USE [None]
